FAERS Safety Report 20959295 (Version 1)
Quarter: 2022Q2

REPORT INFORMATION
  Report Type: Report from Study
  Country: DE (occurrence: DE)
  Receive Date: 20220614
  Receipt Date: 20220614
  Transmission Date: 20220721
  Serious: Yes (Life-Threatening, Hospitalization, Disabling, Other)
  Sender: FDA-Public Use
  Company Number: DE-TAKEDA-2022TUS039627

PATIENT
  Sex: Male

DRUGS (7)
  1. IDURSULFASE [Suspect]
     Active Substance: IDURSULFASE
     Indication: Mucopolysaccharidosis II
     Dosage: 0.58 MILLIGRAM/KILOGRAM, 1/WEEK
     Route: 042
     Dates: start: 20170802
  2. MOVICOL [Concomitant]
     Active Substance: POLYETHYLENE GLYCOL 3350\POTASSIUM CHLORIDE\SODIUM BICARBONATE\SODIUM CHLORIDE
     Indication: Constipation
     Dosage: UNK
     Route: 048
  3. CETIRIZINE HYDROCHLORIDE [Concomitant]
     Active Substance: CETIRIZINE HYDROCHLORIDE
     Indication: Premedication
     Dosage: UNK
     Route: 048
     Dates: start: 20170802
  4. ENALAPRIL [Concomitant]
     Active Substance: ENALAPRIL
     Indication: Angiotensin converting enzyme abnormal
     Dosage: UNK
     Route: 048
     Dates: start: 20180828
  5. Batrafen [Concomitant]
     Indication: Skin irritation
     Dosage: UNK
     Route: 061
     Dates: start: 20180829, end: 20210919
  6. PIPERACILLIN AND TAZOBACTAM [Concomitant]
     Active Substance: PIPERACILLIN SODIUM\TAZOBACTAM SODIUM
     Indication: Ileus
     Dosage: UNK
     Route: 042
     Dates: start: 20210218, end: 20210224
  7. Vigantol [Concomitant]
     Dosage: UNK
     Route: 048
     Dates: start: 202108

REACTIONS (1)
  - Ileus [Recovered/Resolved with Sequelae]

NARRATIVE: CASE EVENT DATE: 20210218
